FAERS Safety Report 14094561 (Version 1)
Quarter: 2017Q4

REPORT INFORMATION
  Report Type: Spontaneous
  Country: PT (occurrence: PT)
  Receive Date: 20171016
  Receipt Date: 20171016
  Transmission Date: 20180321
  Serious: Yes (Hospitalization, Other)
  Sender: FDA-Public Use
  Company Number: PHHY2017PT151348

PATIENT
  Sex: Male

DRUGS (4)
  1. HYDROXYCHLOROQUINE [Suspect]
     Active Substance: HYDROXYCHLOROQUINE
     Indication: FOETAL EXPOSURE DURING PREGNANCY
     Route: 064
  2. PREDNISOLONE. [Suspect]
     Active Substance: PREDNISOLONE
     Indication: FOETAL EXPOSURE DURING PREGNANCY
     Route: 064
  3. SALBUTAMOL [Suspect]
     Active Substance: ALBUTEROL
     Indication: FOETAL EXPOSURE DURING PREGNANCY
     Route: 064
  4. DEXAMETHASONE. [Suspect]
     Active Substance: DEXAMETHASONE
     Indication: FOETAL EXPOSURE DURING PREGNANCY
     Route: 064

REACTIONS (10)
  - Neonatal lupus erythematosus [Recovering/Resolving]
  - Rash [Recovering/Resolving]
  - Hepatomegaly [Recovering/Resolving]
  - Acute respiratory failure [Recovering/Resolving]
  - Sepsis neonatal [Recovering/Resolving]
  - Foetal exposure during pregnancy [Unknown]
  - Atrioventricular block complete [Unknown]
  - Thrombocytopenia neonatal [Recovering/Resolving]
  - Premature baby [Unknown]
  - Lupus pneumonitis [Recovering/Resolving]
